FAERS Safety Report 7543925-0 (Version None)
Quarter: 2011Q2

REPORT INFORMATION
  Report Type: 
  Country: None (occurrence: None)
  Receive Date: 20110613
  Receipt Date: 20110606
  Transmission Date: 20111010
  Serious: Yes (Other)
  Sender: FDA-Public Use
  Company Number: GR-GENENTECH-320051

PATIENT
  Age: 54 Year
  Sex: Male

DRUGS (5)
  1. TINZAPARIN [Concomitant]
     Indication: PLEURAL EFFUSION
     Dosage: 14000 IU, UNK
  2. CEFTRIAXONE [Concomitant]
     Indication: PLEURAL EFFUSION
  3. CIPROFLOXACIN [Concomitant]
     Indication: PLEURAL EFFUSION
  4. CLINDAMYCIN [Concomitant]
     Indication: PLEURAL EFFUSION
  5. ALTEPLASE [Suspect]
     Indication: PLEURAL EFFUSION
     Dosage: 25 MG, X3
     Route: 034

REACTIONS (2)
  - HAEMOTHORAX [None]
  - HYPOVOLAEMIA [None]
